FAERS Safety Report 10917421 (Version 1)
Quarter: 2015Q1

REPORT INFORMATION
  Report Type: Spontaneous
  Country: US (occurrence: None)
  Receive Date: 20150312
  Receipt Date: 20150312
  Transmission Date: 20150721
  Serious: Yes (Other)
  Sender: FDA-Public Use
  Company Number: None

PATIENT
  Age: 29 Year
  Sex: Female
  Weight: 49.9 kg

DRUGS (4)
  1. CLARITHROMYCIN 500MG [Suspect]
     Active Substance: CLARITHROMYCIN
     Indication: SINUSITIS
     Route: 048
     Dates: start: 20150308, end: 20150311
  2. PROBIOTIC SUPPLEMENT [Concomitant]
  3. SERTRALINE [Concomitant]
     Active Substance: SERTRALINE HYDROCHLORIDE
  4. L-GLUTAMINE /00503401/ [Concomitant]
     Active Substance: GLUTAMINE

REACTIONS (10)
  - Heart rate increased [None]
  - Hunger [None]
  - Headache [None]
  - Depressed mood [None]
  - Affective disorder [None]
  - Palpitations [None]
  - Anxiety [None]
  - Psychomotor hyperactivity [None]
  - Gastrointestinal disorder [None]
  - Energy increased [None]

NARRATIVE: CASE EVENT DATE: 20150311
